FAERS Safety Report 15862787 (Version 1)
Quarter: 2019Q1

REPORT INFORMATION
  Report Type: Spontaneous
  Country: TR (occurrence: TR)
  Receive Date: 20190124
  Receipt Date: 20190124
  Transmission Date: 20190417
  Serious: Yes (Other)
  Sender: FDA-Public Use
  Company Number: TR-CASPER PHARMA LLC-2019CAS000010

PATIENT
  Age: 71 Year
  Sex: Female

DRUGS (2)
  1. METHYL PREDNISOLONE [Concomitant]
     Active Substance: METHYLPREDNISOLONE
     Dosage: 40 MILLIGRAM, QD
     Route: 065
  2. PENICILLIN G BENZATHINE [Suspect]
     Active Substance: PENICILLIN G BENZATHINE
     Indication: NEUROSYPHILIS
     Dosage: 21 MILLION INTERNATIONAL UNIT, QD
     Route: 065

REACTIONS (2)
  - Status epilepticus [Unknown]
  - Jarisch-Herxheimer reaction [Unknown]
